FAERS Safety Report 10216943 (Version 1)
Quarter: 2014Q2

REPORT INFORMATION
  Report Type: Spontaneous
  Country: US (occurrence: US)
  Receive Date: 20140604
  Receipt Date: 20140604
  Transmission Date: 20141212
  Serious: Yes (Death)
  Sender: FDA-Public Use
  Company Number: US-GLAXOSMITHKLINE-A1074945A

PATIENT
  Age: 70 Year
  Sex: Male

DRUGS (2)
  1. MEKINIST [Suspect]
     Indication: PRODUCT USED FOR UNKNOWN INDICATION
     Route: 065
  2. TAFINLAR [Suspect]
     Indication: PRODUCT USED FOR UNKNOWN INDICATION
     Route: 065

REACTIONS (4)
  - Brain neoplasm [Unknown]
  - Tumour rupture [Unknown]
  - Haemorrhage [Fatal]
  - Blindness [Unknown]
